FAERS Safety Report 6565435-X (Version None)
Quarter: 2010Q1

REPORT INFORMATION
  Report Type: 
  Country: None (occurrence: None)
  Receive Date: 20100201
  Receipt Date: 20100122
  Transmission Date: 20100710
  Serious: Yes (Hospitalization)
  Sender: FDA-Public Use
  Company Number: PHHY2009MX51804

PATIENT
  Age: 77 Year
  Sex: Female

DRUGS (2)
  1. EXELON [Suspect]
     Indication: SENILE DEMENTIA
     Dosage: 4.6 MG, QD
     Route: 062
     Dates: start: 20090701, end: 20090929
  2. EXELON [Suspect]
     Dosage: 10CM2 PER DAY
     Route: 062
     Dates: start: 20091101

REACTIONS (5)
  - BLOOD POTASSIUM DECREASED [None]
  - BLOOD PRESSURE DECREASED [None]
  - BLOOD SODIUM DECREASED [None]
  - DEHYDRATION [None]
  - SYNCOPE [None]
